FAERS Safety Report 17370107 (Version 1)
Quarter: 2020Q1

REPORT INFORMATION
  Report Type: Spontaneous
  Country: FR (occurrence: FR)
  Receive Date: 20200205
  Receipt Date: 20200205
  Transmission Date: 20200409
  Serious: Yes (Life-Threatening)
  Sender: FDA-Public Use
  Company Number: FR-ZYDUS-047099

PATIENT
  Age: 68 Year
  Sex: Female

DRUGS (8)
  1. AMOXICILLIN. [Interacting]
     Active Substance: AMOXICILLIN
     Indication: ERYSIPELAS
     Route: 048
     Dates: start: 20191112
  2. PRADAXA [Concomitant]
     Active Substance: DABIGATRAN ETEXILATE MESYLATE
     Indication: ATRIAL FIBRILLATION
     Route: 048
     Dates: end: 20191212
  3. ALLOPURINOL. [Suspect]
     Active Substance: ALLOPURINOL
     Indication: GOUT
     Route: 048
     Dates: start: 20191118, end: 20191212
  4. RAMIPRIL. [Interacting]
     Active Substance: RAMIPRIL
     Indication: HYPERTROPHIC CARDIOMYOPATHY
     Route: 048
     Dates: end: 20191212
  5. FUROSEMIDE. [Interacting]
     Active Substance: FUROSEMIDE
     Indication: HYPERTROPHIC CARDIOMYOPATHY
     Route: 048
     Dates: end: 20191212
  6. BISOCE [Interacting]
     Active Substance: BISOPROLOL
     Indication: HYPERTROPHIC CARDIOMYOPATHY
     Route: 048
     Dates: end: 20191212
  7. COLCHICINE. [Interacting]
     Active Substance: COLCHICINE
     Indication: GOUT
     Route: 048
     Dates: start: 20191118, end: 20191212
  8. AMIODARONE [Concomitant]
     Active Substance: AMIODARONE
     Indication: ATRIAL FIBRILLATION
     Route: 048
     Dates: end: 20191212

REACTIONS (2)
  - Diarrhoea [Recovered/Resolved]
  - Hypovolaemic shock [Recovered/Resolved]

NARRATIVE: CASE EVENT DATE: 201911
